FAERS Safety Report 17078357 (Version 5)
Quarter: 2020Q4

REPORT INFORMATION
  Report Type: Report from Study
  Country: None (occurrence: NL)
  Receive Date: 20191126
  Receipt Date: 20201222
  Transmission Date: 20210113
  Serious: Yes (Hospitalization)
  Sender: FDA-Public Use
  Company Number: NL-ABBVIE-19S-114-2800922-00

PATIENT
  Sex: Male

DRUGS (4)
  1. DUODOPA [Suspect]
     Active Substance: CARBIDOPA\LEVODOPA
     Dosage: MD: 12.0, CD: 3.5, ED: 3.5
     Route: 050
     Dates: start: 2019, end: 2019
  2. SINEMET CR [Concomitant]
     Active Substance: CARBIDOPA\LEVODOPA
     Indication: PARKINSON^S DISEASE
     Route: 048
  3. DUODOPA [Suspect]
     Active Substance: CARBIDOPA\LEVODOPA
     Indication: PARKINSON^S DISEASE
     Dosage: REMAINS AT 16 HOURS
     Route: 050
     Dates: start: 20190204, end: 2019
  4. DUODOPA [Suspect]
     Active Substance: CARBIDOPA\LEVODOPA
     Dosage: MD: 12.0 ML, CD: 3.6 ML/HR, ED: 3.5 ML?REMAINS 16 HRS
     Route: 050
     Dates: start: 2019

REACTIONS (32)
  - General physical health deterioration [Not Recovered/Not Resolved]
  - Memory impairment [Not Recovered/Not Resolved]
  - Nocturia [Recovering/Resolving]
  - Fatigue [Unknown]
  - Abnormal dreams [Not Recovered/Not Resolved]
  - Unevaluable event [Recovered/Resolved]
  - Malaise [Not Recovered/Not Resolved]
  - Confusional state [Recovering/Resolving]
  - Extra dose administered [Not Recovered/Not Resolved]
  - Fatigue [Not Recovered/Not Resolved]
  - Haemoglobin decreased [Not Recovered/Not Resolved]
  - Decreased appetite [Not Recovered/Not Resolved]
  - Ageusia [Not Recovered/Not Resolved]
  - Tension [Not Recovered/Not Resolved]
  - Middle insomnia [Not Recovered/Not Resolved]
  - Malaise [Not Recovered/Not Resolved]
  - Aphasia [Recovering/Resolving]
  - Feeling abnormal [Not Recovered/Not Resolved]
  - Fibroma [Unknown]
  - Memory impairment [Unknown]
  - Therapeutic product effect incomplete [Not Recovered/Not Resolved]
  - Weight decreased [Not Recovered/Not Resolved]
  - Freezing phenomenon [Not Recovered/Not Resolved]
  - On and off phenomenon [Not Recovered/Not Resolved]
  - Stoma site inflammation [Unknown]
  - Stoma site pain [Unknown]
  - Musculoskeletal stiffness [Not Recovered/Not Resolved]
  - Hyposmia [Not Recovered/Not Resolved]
  - Weight decreased [Recovered/Resolved]
  - Muscle rigidity [Not Recovered/Not Resolved]
  - Dyskinesia [Not Recovered/Not Resolved]
  - Hypokinesia [Not Recovered/Not Resolved]

NARRATIVE: CASE EVENT DATE: 2019
